FAERS Safety Report 15626237 (Version 1)
Quarter: 2018Q4

REPORT INFORMATION
  Report Type: Spontaneous
  Country: US (occurrence: US)
  Receive Date: 20181116
  Receipt Date: 20181116
  Transmission Date: 20190205
  Serious: Yes (Hospitalization)
  Sender: FDA-Public Use
  Company Number: None

PATIENT
  Age: 44 Year
  Sex: Female
  Weight: 56.25 kg

DRUGS (1)
  1. TAKE ACTION [Suspect]
     Active Substance: LEVONORGESTREL
     Indication: POST COITAL CONTRACEPTION
     Dosage: ?          QUANTITY:1 TABLET(S);OTHER FREQUENCY:ONCE;?
     Route: 048
     Dates: start: 20181113, end: 20181113

REACTIONS (11)
  - Hyperhidrosis [None]
  - Muscle spasms [None]
  - Tachypnoea [None]
  - Hypotension [None]
  - Hypopnoea [None]
  - Presyncope [None]
  - Cold sweat [None]
  - Fatigue [None]
  - Peripheral coldness [None]
  - Nausea [None]
  - Dizziness [None]

NARRATIVE: CASE EVENT DATE: 20181114
